FAERS Safety Report 8419520-8 (Version None)
Quarter: 2012Q2

REPORT INFORMATION
  Report Type: 
  Country: None (occurrence: None)
  Receive Date: 20120607
  Receipt Date: 20110909
  Transmission Date: 20120825
  Serious: No
  Sender: FDA-Public Use
  Company Number: US-BRISTOL-MYERS SQUIBB COMPANY-16048035

PATIENT

DRUGS (2)
  1. SUSTIVA [Suspect]
  2. REYATAZ [Suspect]

REACTIONS (1)
  - HYPERSENSITIVITY [None]
